FAERS Safety Report 12333682 (Version 2)
Quarter: 2016Q3

REPORT INFORMATION
  Report Type: Spontaneous
  Country: US (occurrence: US)
  Receive Date: 20160504
  Receipt Date: 20160809
  Transmission Date: 20161109
  Serious: Yes (Hospitalization)
  Sender: FDA-Public Use
  Company Number: US-ASTRAZENECA-2016SE46172

PATIENT
  Age: 24247 Day
  Sex: Female
  Weight: 60.3 kg

DRUGS (10)
  1. SYMBICORT [Suspect]
     Active Substance: BUDESONIDE\FORMOTEROL FUMARATE DIHYDRATE
     Indication: CHRONIC OBSTRUCTIVE PULMONARY DISEASE
     Dosage: 160/4.5 MCG, 2PUFFS BID
     Route: 055
     Dates: start: 2006
  2. CIPROFLOXACIN. [Concomitant]
     Active Substance: CIPROFLOXACIN
     Indication: KIDNEY INFECTION
     Route: 048
     Dates: start: 20160421
  3. ATORVASTATIN [Concomitant]
     Active Substance: ATORVASTATIN
     Route: 048
     Dates: start: 2015
  4. XOPENEX RESCUE INHALER [Concomitant]
     Indication: DYSPNOEA
     Dosage: AS REQUIRED
     Route: 055
     Dates: start: 2015
  5. OXYGEN. [Concomitant]
     Active Substance: OXYGEN
     Indication: CHRONIC OBSTRUCTIVE PULMONARY DISEASE
     Dosage: 2.0L AS REQUIRED
     Route: 055
     Dates: start: 20150209
  6. VALSARTAN. [Concomitant]
     Active Substance: VALSARTAN
     Route: 048
     Dates: start: 2015
  7. METOPROLOL. [Suspect]
     Active Substance: METOPROLOL
     Route: 048
     Dates: start: 2015
  8. AMLODIPINE [Concomitant]
     Active Substance: AMLODIPINE BESYLATE
     Route: 048
     Dates: start: 2015
  9. PANTOTRAZOLE [Concomitant]
     Route: 048
     Dates: start: 2015
  10. NEXIUM [Concomitant]
     Active Substance: ESOMEPRAZOLE MAGNESIUM
     Indication: GASTROOESOPHAGEAL REFLUX DISEASE
     Dates: start: 20150310

REACTIONS (4)
  - Kidney infection [Unknown]
  - Dyspnoea [Unknown]
  - Myocardial infarction [Unknown]
  - Product quality issue [Unknown]

NARRATIVE: CASE EVENT DATE: 20150209
